FAERS Safety Report 6690588-2 (Version None)
Quarter: 2010Q2

REPORT INFORMATION
  Report Type: 
  Country: None (occurrence: None)
  Receive Date: 20100421
  Receipt Date: 20100414
  Transmission Date: 20101027
  Serious: Yes (Hospitalization)
  Sender: FDA-Public Use
  Company Number: B0621417A

PATIENT
  Sex: Female

DRUGS (5)
  1. PAXIL [Suspect]
     Indication: DEPRESSION
     Dosage: 20MG PER DAY
     Route: 048
     Dates: end: 20071009
  2. GRAMALIL [Concomitant]
     Indication: HALLUCINATION
     Dosage: 200MG PER DAY
     Route: 048
     Dates: end: 20070717
  3. SYMMETREL [Concomitant]
     Indication: PARKINSON'S DISEASE
     Dosage: 112.5MG PER DAY
     Route: 048
     Dates: end: 20070717
  4. MENESIT [Concomitant]
     Indication: PARKINSON'S DISEASE
     Dosage: 12.5MG PER DAY
     Route: 048
     Dates: end: 20070717
  5. CABASER [Concomitant]
     Indication: PARKINSON'S DISEASE
     Dosage: 1MG PER DAY
     Route: 048
     Dates: end: 20070717

REACTIONS (4)
  - AKINESIA [None]
  - HALLUCINATION [None]
  - PARKINSONISM [None]
  - TREMOR [None]
